FAERS Safety Report 5874940-0 (Version None)
Quarter: 2008Q3

REPORT INFORMATION
  Report Type: 
  Country: None (occurrence: None)
  Receive Date: 20080904
  Receipt Date: 20080819
  Transmission Date: 20090109
  Serious: Yes (Life-Threatening, Hospitalization)
  Sender: FDA-Public Use
  Company Number: WAES 0808CAN00084

PATIENT
  Age: 40 Year
  Sex: Male

DRUGS (2)
  1. ISENTRESS [Suspect]
     Indication: HIV INFECTION
     Dosage: 800 MG/DAILY
     Route: 048
     Dates: start: 20070215, end: 20070101
  2. TAB TMC-114 (DARUNAVIR) [Suspect]
     Indication: HIV INFECTION
     Dosage: 600 MG/BID
     Route: 048
     Dates: start: 20070215, end: 20070613

REACTIONS (2)
  - CONSTIPATION [None]
  - PANCREATITIS [None]
